FAERS Safety Report 10686848 (Version 1)
Quarter: 2015Q1

REPORT INFORMATION
  Report Type: Report from Study
  Country: US (occurrence: US)
  Receive Date: 20150101
  Receipt Date: 20150101
  Transmission Date: 20150720
  Serious: Yes (Hospitalization)
  Sender: FDA-Public Use
  Company Number: US-009507513-1412USA013799

PATIENT
  Age: 74 Year
  Weight: 81.63 kg

DRUGS (2)
  1. VELCADE [Suspect]
     Active Substance: BORTEZOMIB
     Indication: PLASMA CELL MYELOMA
     Dosage: 2.5 MG, FREQUENCY: 2X WEEKLY, DAYS 1,4 Q 7DAYS, 1WEEK OFF Q 14 DAY
     Route: 058
     Dates: start: 20110711
  2. DECADRON [Suspect]
     Active Substance: DEXAMETHASONE
     Indication: PLASMA CELL MYELOMA
     Dosage: 20 MG,  FREQUENCY: 1,8,15,22
     Route: 048
     Dates: start: 20110718

REACTIONS (1)
  - Pain in extremity [Unknown]

NARRATIVE: CASE EVENT DATE: 20120830
